FAERS Safety Report 18893527 (Version 1)
Quarter: 2021Q1

REPORT INFORMATION
  Report Type: Other
  Country: MX (occurrence: MX)
  Receive Date: 20210215
  Receipt Date: 20210215
  Transmission Date: 20210420
  Serious: Yes (Other)
  Sender: FDA-Public Use
  Company Number: MX-ROCHE-2769676

PATIENT
  Age: 51 Year
  Sex: Female
  Weight: 62 kg

DRUGS (1)
  1. ROACTEMRA [Suspect]
     Active Substance: TOCILIZUMAB
     Indication: RHEUMATOID ARTHRITIS
     Route: 042
     Dates: start: 20201024

REACTIONS (6)
  - Platelet count decreased [Recovering/Resolving]
  - Haemorrhoids [Recovering/Resolving]
  - COVID-19 pneumonia [Recovering/Resolving]
  - Immunodeficiency [Recovering/Resolving]
  - C-reactive protein increased [Recovering/Resolving]
  - Weight decreased [Not Recovered/Not Resolved]

NARRATIVE: CASE EVENT DATE: 20210116
